FAERS Safety Report 7576045-X (Version None)
Quarter: 2011Q2

REPORT INFORMATION
  Report Type: 
  Country: None (occurrence: None)
  Receive Date: 20110628
  Receipt Date: 20110609
  Transmission Date: 20111010
  Serious: Yes (Hospitalization)
  Sender: FDA-Public Use
  Company Number: ES-BAYER-2011-049413

PATIENT
  Age: 67 Year
  Sex: Male

DRUGS (9)
  1. METFORMIN HCL [Concomitant]
     Indication: TYPE 2 DIABETES MELLITUS
     Route: 048
     Dates: start: 20100301
  2. MOXIFLOXACIN [Suspect]
     Indication: RESPIRATORY TRACT INFECTION
     Dosage: 400 MG, HS
     Route: 048
     Dates: start: 20110103, end: 20110105
  3. NOVONORM [Concomitant]
     Indication: TYPE 2 DIABETES MELLITUS
     Route: 048
     Dates: start: 20100301
  4. IBUPROFEN [Suspect]
     Indication: RESPIRATORY TRACT INFECTION
     Route: 048
     Dates: start: 20110103, end: 20110105
  5. MANIDON [Concomitant]
     Indication: HYPERTENSION
     Route: 048
     Dates: start: 20100301, end: 20110105
  6. PRAVASTATIN [Concomitant]
     Indication: DYSLIPIDAEMIA
     Route: 048
     Dates: start: 20100301, end: 20110105
  7. ACETYLCYSTEINE [Suspect]
     Indication: RESPIRATORY TRACT INFECTION
     Route: 048
     Dates: start: 20110103, end: 20110105
  8. MOXON [Concomitant]
     Indication: HYPERTENSION
     Route: 048
     Dates: start: 20100301
  9. CODEISAN [Suspect]
     Indication: RESPIRATORY TRACT INFECTION
     Route: 048
     Dates: start: 20110103, end: 20110105

REACTIONS (3)
  - HYPERKALAEMIA [None]
  - METABOLIC ACIDOSIS [None]
  - RENAL FAILURE ACUTE [None]
